FAERS Safety Report 5365776-8 (Version None)
Quarter: 2007Q2

REPORT INFORMATION
  Report Type: 
  Country: None (occurrence: None)
  Receive Date: 20070621
  Receipt Date: 20070618
  Transmission Date: 20071010
  Serious: Yes (Death, Life-Threatening)
  Sender: FDA-Public Use
  Company Number: FR-SANOFI-SYNTHELABO-F01200700759

PATIENT
  Sex: Male

DRUGS (15)
  1. ALBUMIN (HUMAN) [Concomitant]
     Dosage: UNK
     Route: 065
     Dates: start: 20070514
  2. MORPHINE [Concomitant]
     Dosage: UNK
     Route: 065
     Dates: start: 20070511
  3. TIENAM [Concomitant]
     Dosage: UNK
     Route: 065
     Dates: start: 20070511
  4. ELECTROLYTES [Concomitant]
     Dosage: UNK
     Route: 065
     Dates: start: 20070510
  5. TRIFLUCAN [Concomitant]
     Dosage: UNK
     Route: 065
     Dates: start: 20070509
  6. ZOVIRAX [Concomitant]
     Dosage: UNK
     Route: 065
     Dates: start: 20070509
  7. PHOCYTAN [Concomitant]
     Dosage: UNK
     Route: 065
     Dates: start: 20070509
  8. GEMCITABINE [Suspect]
     Route: 042
     Dates: start: 20070505, end: 20070505
  9. LASIX [Concomitant]
     Dosage: UNK
     Route: 065
     Dates: start: 20070509
  10. ACUPAN [Concomitant]
     Dosage: UNK
     Route: 065
     Dates: start: 20070501
  11. ENZASTAURIN [Suspect]
     Dosage: 1125 MG ON DAY 1 THEN CONTINUOUS 500 MG DAILY
     Route: 048
     Dates: start: 20070504, end: 20070513
  12. LOVENOX [Concomitant]
     Dosage: UNK
     Route: 065
     Dates: start: 20070430
  13. GRANOCYTE [Concomitant]
     Dosage: UNK
     Route: 065
     Dates: start: 20070503
  14. OXALIPLATIN [Suspect]
     Indication: B-CELL LYMPHOMA
     Route: 042
     Dates: start: 20070505, end: 20070505
  15. RITUXIMAB [Suspect]
     Route: 042
     Dates: start: 20070504, end: 20070504

REACTIONS (1)
  - SEPTIC SHOCK [None]
